FAERS Safety Report 5614674-0 (Version None)
Quarter: 2008Q1

REPORT INFORMATION
  Report Type: 
  Country: None (occurrence: None)
  Receive Date: 20080131
  Receipt Date: 20080118
  Transmission Date: 20080703
  Serious: Yes (Hospitalization)
  Sender: FDA-Public Use
  Company Number: 2008-00331

PATIENT
  Age: 81 Year
  Sex: Female

DRUGS (5)
  1. HYDROXYCHLOROQUINE SULFATE [Suspect]
     Indication: ARTHRITIS
     Dosage: 2 TABLET, DAILY, ORAL
     Route: 048
     Dates: start: 20071022, end: 20071105
  2. ATACAND [Concomitant]
  3. LEVOTHYROXINE SODIUM [Concomitant]
  4. HYDROCHLOROTHIAZIDE [Concomitant]
  5. FISH OIL (FISH OIL) [Concomitant]

REACTIONS (6)
  - ERYTHEMA MULTIFORME [None]
  - LIP SWELLING [None]
  - PNEUMONIA [None]
  - SINUSITIS [None]
  - SKIN REACTION [None]
  - THERMAL BURN [None]
